FAERS Safety Report 7641005-7 (Version None)
Quarter: 2011Q3

REPORT INFORMATION
  Report Type: 
  Country: None (occurrence: None)
  Receive Date: 20110728
  Receipt Date: 20110714
  Transmission Date: 20111222
  Serious: Yes (Other)
  Sender: FDA-Public Use
  Company Number: TR-BAYER-2011-061393

PATIENT
  Sex: Female

DRUGS (1)
  1. GENERIC STUDY FOR YASMIN (SAG0098D) [Suspect]

REACTIONS (1)
  - EMBOLISM [None]
